FAERS Safety Report 6940280-1 (Version None)
Quarter: 2010Q3

REPORT INFORMATION
  Report Type: 
  Country: None (occurrence: None)
  Receive Date: 20100825
  Receipt Date: 20100813
  Transmission Date: 20110219
  Serious: Yes (Hospitalization, Other)
  Sender: FDA-Public Use
  Company Number: PHFR2010IE01201

PATIENT
  Sex: Male

DRUGS (1)
  1. CLOZARIL [Suspect]
     Indication: SCHIZOPHRENIA
     Dosage: UNK
     Dates: start: 20050113

REACTIONS (5)
  - ANAEMIA [None]
  - DIZZINESS [None]
  - OESOPHAGEAL STENOSIS [None]
  - OESOPHAGECTOMY [None]
  - WEIGHT DECREASED [None]
